FAERS Safety Report 9095750 (Version 1)
Quarter: 2013Q1

REPORT INFORMATION
  Report Type: Spontaneous
  Country: US (occurrence: US)
  Receive Date: 20130219
  Receipt Date: 20130219
  Transmission Date: 20140127
  Serious: Yes (Death, Other)
  Sender: FDA-Public Use
  Company Number: US-ROXANE LABORATORIES, INC.-2013-RO-00244RO

PATIENT
  Age: 36 Year
  Sex: Female

DRUGS (12)
  1. DIGOXIN [Suspect]
     Indication: CARDIAC FAILURE
  2. FUROSEMIDE [Suspect]
     Indication: CARDIAC FAILURE
  3. PREDNISONE [Suspect]
     Indication: ACUTE LYMPHOCYTIC LEUKAEMIA
  4. MERCAPTOPURINE [Suspect]
     Indication: ACUTE LYMPHOCYTIC LEUKAEMIA
  5. METHOTREXATE [Suspect]
     Indication: ACUTE LYMPHOCYTIC LEUKAEMIA
  6. VINCRISTINE [Suspect]
     Indication: ACUTE LYMPHOCYTIC LEUKAEMIA
  7. DOXORUBICIN [Suspect]
     Indication: ACUTE LYMPHOCYTIC LEUKAEMIA
  8. ASPARAGINASE [Suspect]
     Indication: ACUTE LYMPHOCYTIC LEUKAEMIA
  9. ENALAPRIL [Suspect]
     Indication: CONGESTIVE CARDIOMYOPATHY
  10. CARVEDILOL [Suspect]
     Indication: ATRIAL FIBRILLATION
  11. VITAMIN D3 [Concomitant]
     Indication: SUPPLEMENTATION THERAPY
  12. IRON [Concomitant]
     Indication: SUPPLEMENTATION THERAPY
     Route: 042

REACTIONS (13)
  - Sudden cardiac death [Fatal]
  - Cardiotoxicity [Unknown]
  - Cardiac failure [Unknown]
  - Upper respiratory tract infection [Unknown]
  - Congestive cardiomyopathy [Unknown]
  - Vitamin D deficiency [Unknown]
  - Iron deficiency anaemia [Unknown]
  - Type 2 diabetes mellitus [Unknown]
  - Amenorrhoea [Unknown]
  - Migraine [Unknown]
  - Arthralgia [Unknown]
  - Back pain [Unknown]
  - Atrial fibrillation [Unknown]
